FAERS Safety Report 9111925 (Version 1)
Quarter: 2013Q1

REPORT INFORMATION
  Report Type: Spontaneous
  Country: US (occurrence: US)
  Receive Date: 20130219
  Receipt Date: 20130219
  Transmission Date: 20140127
  Serious: No
  Sender: FDA-Public Use
  Company Number: US-BRISTOL-MYERS SQUIBB COMPANY-17009036

PATIENT
  Age: 56 Year
  Sex: Female
  Weight: 65.76 kg

DRUGS (5)
  1. ORENCIA FOR INJ 250 MG/VIAL [Suspect]
     Dosage: FORMULATION-ORENCIA 125MG/ML.?START POSSIBLY AUG12
     Route: 058
  2. METHOTREXATE [Suspect]
     Dosage: FORMULATION-METHOTREXATE TAB 2.5MG
  3. FOLIC ACID [Concomitant]
     Dosage: TAB
  4. PREDNISONE [Concomitant]
     Dosage: FORMULATION-PREDNISONE TAB 10MG
  5. VITAMIN D [Concomitant]
     Dosage: FORMULATION-VITAMIN D CAP 50000 UNT

REACTIONS (3)
  - Tinea versicolour [Unknown]
  - Weight increased [Unknown]
  - Drug ineffective [Unknown]
